FAERS Safety Report 6322867-2 (Version None)
Quarter: 2009Q3

REPORT INFORMATION
  Report Type: 
  Country: None (occurrence: None)
  Receive Date: 20090824
  Receipt Date: 20090818
  Transmission Date: 20100115
  Serious: Yes (Hospitalization, Other)
  Sender: FDA-Public Use
  Company Number: PHHY2009CA16639

PATIENT
  Sex: Female

DRUGS (8)
  1. SANDOSTATIN LAR [Suspect]
     Indication: CARCINOID TUMOUR
     Dosage: 40 MG EVERY 4 WEEKS
     Route: 030
     Dates: start: 20001106
  2. METFORMIN HCL [Concomitant]
  3. METOPROLOL [Concomitant]
  4. LASIX [Concomitant]
  5. ZANTAC [Concomitant]
     Dosage: 75 MG
     Route: 048
  6. INSULIN [Concomitant]
  7. COZAAR [Concomitant]
     Dosage: 50 ML
  8. PARIET [Concomitant]

REACTIONS (4)
  - CARDIAC FAILURE [None]
  - CORONARY ARTERY BYPASS [None]
  - CORONARY ARTERY DISEASE [None]
  - DYSPNOEA [None]
